FAERS Safety Report 16316582 (Version 1)
Quarter: 2019Q2

REPORT INFORMATION
  Report Type: Spontaneous
  Country: US (occurrence: US)
  Receive Date: 20190515
  Receipt Date: 20190515
  Transmission Date: 20190711
  Serious: No
  Sender: FDA-Public Use
  Company Number: US-009507513-1905USA001822

PATIENT
  Age: 64 Year
  Sex: Female

DRUGS (12)
  1. ATORVASTATIN [Concomitant]
     Active Substance: ATORVASTATIN
  2. FUROSEMIDE. [Concomitant]
     Active Substance: FUROSEMIDE
  3. LOSARTAN. [Concomitant]
     Active Substance: LOSARTAN
  4. PROBIOTICS (UNSPECIFIED) [Concomitant]
     Active Substance: PROBIOTICS NOS
  5. ASMANEX [Suspect]
     Active Substance: MOMETASONE FUROATE
     Indication: WHEEZING
  6. VERAPAMIL [Concomitant]
     Active Substance: VERAPAMIL HYDROCHLORIDE
  7. ZANTAC [Concomitant]
     Active Substance: RANITIDINE HYDROCHLORIDE
  8. VITAMINS (UNSPECIFIED) [Concomitant]
     Active Substance: VITAMINS
  9. CLARITIN [Concomitant]
     Active Substance: LORATADINE
  10. VENTOLIN HFA [Concomitant]
     Active Substance: ALBUTEROL SULFATE
  11. ASMANEX [Suspect]
     Active Substance: MOMETASONE FUROATE
     Indication: COUGH
     Dosage: UNK
  12. ASPIRIN. [Concomitant]
     Active Substance: ASPIRIN

REACTIONS (4)
  - Drug ineffective [Recovered/Resolved]
  - Product quality issue [Recovered/Resolved]
  - Cough [Recovered/Resolved]
  - Poor quality device used [Unknown]

NARRATIVE: CASE EVENT DATE: 20190320
